FAERS Safety Report 6049589-X (Version None)
Quarter: 2009Q1

REPORT INFORMATION
  Report Type: 
  Country: None (occurrence: None)
  Receive Date: 20090121
  Receipt Date: 20080212
  Transmission Date: 20090719
  Serious: Yes (Hospitalization, Other)
  Sender: FDA-Public Use
  Company Number: US-WYE-H00957307

PATIENT
  Age: 53 Year
  Sex: Female
  Weight: 49.94 kg

DRUGS (3)
  1. PREMPRO [Suspect]
     Indication: HORMONE THERAPY
     Dosage: 0.625MG/5MG; FREQUENCY NOT PROVIDED, ORAL
     Route: 048
     Dates: end: 20010313
  2. NEURONTIN [Concomitant]
  3. OSCAL (CALCIUM CARBONATE) [Concomitant]

REACTIONS (1)
  - VAGINAL HAEMORRHAGE [None]
